FAERS Safety Report 6392037-0 (Version None)
Quarter: 2009Q4

REPORT INFORMATION
  Report Type: 
  Country: None (occurrence: None)
  Receive Date: 20091007
  Receipt Date: 20091001
  Transmission Date: 20100525
  Serious: Yes (Death, Hospitalization)
  Sender: FDA-Public Use
  Company Number: FR-ROCHE-659753

PATIENT
  Sex: Male

DRUGS (6)
  1. CAPECITABINE [Suspect]
     Indication: GASTRIC CANCER
     Route: 065
     Dates: start: 20080707
  2. IRINOTECAN HCL [Suspect]
     Indication: GASTRIC CANCER
     Dosage: FORM: CONCENTRATE FOR SOLUTION FOR INFUSION.
     Route: 065
  3. EPIRUBICIN HCL [Suspect]
     Indication: GASTRIC CANCER
     Route: 065
     Dates: start: 20080707
  4. CISPLATIN [Suspect]
     Indication: GASTRIC CANCER
     Route: 065
     Dates: start: 20080707
  5. FLUOROURACIL [Suspect]
     Indication: GASTRIC CANCER
     Dosage: FORM: SOLUTION FOR INJECTION
     Route: 065
  6. FOLINIC ACID [Suspect]
     Indication: GASTRIC CANCER
     Route: 065

REACTIONS (1)
  - GASTROINTESTINAL HAEMORRHAGE [None]
